FAERS Safety Report 7120844-5 (Version None)
Quarter: 2010Q4

REPORT INFORMATION
  Report Type: 
  Country: None (occurrence: None)
  Receive Date: 20101124
  Receipt Date: 20091111
  Transmission Date: 20110411
  Serious: Yes (Other)
  Sender: FDA-Public Use
  Company Number: US-PFIZER INC-2009286306

PATIENT
  Sex: Female
  Weight: 82 kg

DRUGS (8)
  1. TIKOSYN [Suspect]
     Indication: ATRIAL FIBRILLATION
     Dosage: 500 UG, 2X/DAY
     Dates: start: 20091014, end: 20091019
  2. ATENOLOL [Concomitant]
     Dosage: 25 MG, DAILY
     Dates: start: 20091014, end: 20091015
  3. ATENOLOL [Concomitant]
     Dosage: 12.5 MG, DAILY
     Dates: start: 20091015, end: 20091016
  4. PROTONIX [Concomitant]
     Dosage: UNK
  5. CUMADIN [Concomitant]
     Dosage: UNK
  6. ACETYLSALICYLIC ACID [Concomitant]
     Dosage: UNK
  7. MAGNESIUM [Concomitant]
     Dosage: UNK
  8. REQUIP [Concomitant]
     Dosage: UNK

REACTIONS (2)
  - ELECTROCARDIOGRAM QT PROLONGED [None]
  - SINUS BRADYCARDIA [None]
